FAERS Safety Report 18643451 (Version 1)
Quarter: 2020Q4

REPORT INFORMATION
  Report Type: Spontaneous
  Country: US (occurrence: US)
  Receive Date: 20201221
  Receipt Date: 20201221
  Transmission Date: 20210114
  Serious: Yes (Life-Threatening)
  Sender: FDA-Public Use
  Company Number: US-PFIZER INC-2020491878

PATIENT
  Age: 34 Year
  Sex: Female

DRUGS (4)
  1. NORMAL SALINE [Suspect]
     Active Substance: SODIUM CHLORIDE
     Indication: METABOLIC ACIDOSIS
     Dosage: UNK
  2. SODIUM BICARBONATE. [Suspect]
     Active Substance: SODIUM BICARBONATE
     Indication: RESPIRATORY ACIDOSIS
     Dosage: UNK (15-20 MEQ/H, INFUSION )
     Route: 041
  3. SODIUM BICARBONATE. [Suspect]
     Active Substance: SODIUM BICARBONATE
     Indication: METABOLIC ACIDOSIS
     Dosage: 50 MEQ
     Route: 042
  4. NORMAL SALINE [Suspect]
     Active Substance: SODIUM CHLORIDE
     Indication: RESPIRATORY ACIDOSIS

REACTIONS (1)
  - Ventricular tachycardia [Unknown]
